FAERS Safety Report 5486229-2 (Version None)
Quarter: 2007Q4

REPORT INFORMATION
  Report Type: 
  Country: None (occurrence: None)
  Receive Date: 20071005
  Receipt Date: 20070718
  Transmission Date: 20080405
  Serious: No
  Sender: FDA-Public Use
  Company Number: PHEH2007US10115

PATIENT
  Age: 86 Year
  Sex: Female

DRUGS (2)
  1. TEKTURNA [Suspect]
     Dosage: 300 MG UNK ORAL, 1 TABLETS IN THE AM;2 TABLETS IN THE PM, UNK
     Route: 048
     Dates: start: 20070717, end: 20070717
  2. TEKTURNA [Suspect]
     Dosage: 300 MG UNK ORAL, 1 TABLETS IN THE AM;2 TABLETS IN THE PM, UNK
     Route: 048
     Dates: start: 20070718

REACTIONS (1)
  - BLOOD PRESSURE INADEQUATELY CONTROLLED [None]
